FAERS Safety Report 18818533 (Version 2)
Quarter: 2021Q4

REPORT INFORMATION
  Report Type: Spontaneous
  Country: DE (occurrence: DE)
  Receive Date: 20210201
  Receipt Date: 20211104
  Transmission Date: 20220303
  Serious: Yes (Hospitalization)
  Sender: FDA-Public Use
  Company Number: DE-ADRED-06067-01

PATIENT
  Age: 75 Year
  Sex: Male

DRUGS (9)
  1. ASPIRIN [Suspect]
     Active Substance: ASPIRIN
     Indication: Product used for unknown indication
     Dosage: 100 MG, 1-0-0-0, TABLETTEN
  2. SPIRONOLACTONE [Suspect]
     Active Substance: SPIRONOLACTONE
     Indication: Product used for unknown indication
     Dosage: 50 MG, 1-0-0-0, TABLETTEN
  3. TORSEMIDE [Suspect]
     Active Substance: TORSEMIDE
     Indication: Product used for unknown indication
     Dosage: 20 MG, 0.5-0-0-0, TABLETTEN
  4. VITAMIN B1                         /00056101/ [Concomitant]
     Dosage: 100 MG, 1-0-0-0, TABLETTEN
  5. EISEN                              /00023501/ [Concomitant]
     Dosage: 100 MG, 1-0-0-0, KAPSELN
  6. CARVEDILOL [Concomitant]
     Active Substance: CARVEDILOL
     Dosage: 6.25 MG, 1-0-0-0, TABLETTEN
  7. LACTULOSE [Concomitant]
     Active Substance: LACTULOSE
     Dosage: 20 ML, 1-1-1-0, SIRUP
  8. ORNITHINE ASPARTATE [Concomitant]
     Active Substance: ORNITHINE ASPARTATE
     Dosage: 3 G, 1-0-1-0, GRANULAT
  9. PANTOPRAZOL                        /01263201/ [Concomitant]
     Dosage: 40 MG, 1-0-0-0, TABLETTEN

REACTIONS (4)
  - Fatigue [Recovering/Resolving]
  - Asthenia [Recovering/Resolving]
  - Anaemia [Recovering/Resolving]
  - Fall [Recovering/Resolving]
